FAERS Safety Report 23563984 (Version 1)
Quarter: 2024Q1

REPORT INFORMATION
  Report Type: Spontaneous
  Country: US (occurrence: US)
  Receive Date: 20240226
  Receipt Date: 20240226
  Transmission Date: 20240409
  Serious: No
  Sender: FDA-Public Use
  Company Number: US-ELI_LILLY_AND_COMPANY-US202402013589

PATIENT
  Age: 16 Year
  Sex: Male

DRUGS (1)
  1. OLUMIANT [Suspect]
     Active Substance: BARICITINIB
     Indication: Alopecia areata
     Dosage: 4 MG, UNKNOWN
     Route: 065
     Dates: start: 202205

REACTIONS (5)
  - Tinea infection [Unknown]
  - Off label use [Unknown]
  - Rash pruritic [Recovered/Resolved]
  - Eczema [Unknown]
  - Dermatitis [Unknown]

NARRATIVE: CASE EVENT DATE: 20220501
